FAERS Safety Report 6030798-0 (Version None)
Quarter: 2009Q1

REPORT INFORMATION
  Report Type: 
  Country: None (occurrence: None)
  Receive Date: 20090107
  Receipt Date: 20081223
  Transmission Date: 20090719
  Serious: Yes (Hospitalization)
  Sender: FDA-Public Use
  Company Number: CH-ASTRAZENECA-2008PK02778

PATIENT
  Age: 80 Year
  Sex: Female

DRUGS (5)
  1. BISOPROLOL FUMARATE [Suspect]
     Route: 048
     Dates: end: 20080825
  2. COZAAR [Concomitant]
     Route: 048
  3. ASPEGIC 325 [Concomitant]
     Route: 048
  4. LUDIOMIL [Concomitant]
     Route: 048
  5. TOREM [Concomitant]
     Route: 048

REACTIONS (2)
  - ATRIOVENTRICULAR BLOCK COMPLETE [None]
  - BRADYCARDIA [None]
